FAERS Safety Report 23338833 (Version 1)
Quarter: 2023Q4

REPORT INFORMATION
  Report Type: Spontaneous
  Country: US (occurrence: US)
  Receive Date: 20231226
  Receipt Date: 20231226
  Transmission Date: 20240110
  Serious: Yes (Other)
  Sender: FDA-Public Use
  Company Number: US-AMGEN-USASP2023227760

PATIENT
  Age: 76 Year
  Sex: Male

DRUGS (5)
  1. RITUXIMAB [Suspect]
     Active Substance: RITUXIMAB
     Indication: Lymphoplasmacytoid lymphoma/immunocytoma
     Dosage: UNK
     Route: 065
  2. CYCLOPHOSPHAMIDE [Concomitant]
     Active Substance: CYCLOPHOSPHAMIDE
     Indication: Lymphoplasmacytoid lymphoma/immunocytoma
     Dosage: UNK
     Route: 065
  3. VINCRISTINE [Concomitant]
     Active Substance: VINCRISTINE
     Indication: Lymphoplasmacytoid lymphoma/immunocytoma
     Dosage: UNK
     Route: 065
  4. PREDNISONE [Concomitant]
     Active Substance: PREDNISONE
     Indication: Lymphoplasmacytoid lymphoma/immunocytoma
     Dosage: UNK
     Route: 065
  5. BENDAMUSTINE [Concomitant]
     Active Substance: BENDAMUSTINE
     Indication: Lymphoplasmacytoid lymphoma/immunocytoma
     Dosage: UNK
     Route: 065

REACTIONS (1)
  - Lymphoplasmacytoid lymphoma/immunocytoma [Unknown]
